FAERS Safety Report 4414753-X (Version None)
Quarter: 2004Q3

REPORT INFORMATION
  Report Type: 
  Country: None (occurrence: None)
  Receive Date: 20040804
  Receipt Date: 20030821
  Transmission Date: 20050211
  Serious: No
  Sender: FDA-Public Use
  Company Number: US-BRISTOL-MYERS SQUIBB COMPANY-12361937

PATIENT
  Age: 66 Year
  Sex: Female

DRUGS (4)
  1. GLUCOVANCE [Suspect]
     Indication: BLOOD GLUCOSE INCREASED
     Dosage: DURATION OF THERAPY:  ^8-9 MONTHS^
     Route: 048
  2. LIPITOR [Concomitant]
  3. NEURONTIN [Concomitant]
  4. MOTRIN [Concomitant]

REACTIONS (2)
  - PAIN IN EXTREMITY [None]
  - WEIGHT INCREASED [None]
